FAERS Safety Report 24312001 (Version 2)
Quarter: 2025Q1

REPORT INFORMATION
  Report Type: Spontaneous
  Country: US (occurrence: US)
  Receive Date: 20240912
  Receipt Date: 20250121
  Transmission Date: 20250409
  Serious: No
  Sender: CB FLEET
  Company Number: US-PRESTIGE-202409-US-002920

PATIENT
  Age: 30 Year
  Sex: Female
  Weight: 80 kg

DRUGS (2)
  1. CLEAR EYES REDNESS RELIEF [Suspect]
     Active Substance: GLYCERIN\NAPHAZOLINE HYDROCHLORIDE
     Indication: Ocular hyperaemia
     Route: 047
  2. CLEAR EYES REDNESS RELIEF [Suspect]
     Active Substance: GLYCERIN\NAPHAZOLINE HYDROCHLORIDE
     Indication: Eye irritation

REACTIONS (3)
  - Dry eye [Unknown]
  - Exposure to toxic agent [Unknown]
  - Blood pressure increased [Unknown]
